FAERS Safety Report 20503787 (Version 2)
Quarter: 2022Q2

REPORT INFORMATION
  Report Type: Report from Study
  Country: IT (occurrence: IT)
  Receive Date: 20220222
  Receipt Date: 20220421
  Transmission Date: 20220720
  Serious: Yes (Other)
  Sender: FDA-Public Use
  Company Number: IT-UCBSA-2022008849

PATIENT
  Sex: Female

DRUGS (3)
  1. LACOSAMIDE [Suspect]
     Active Substance: LACOSAMIDE
     Indication: Product used for unknown indication
     Dosage: 50 MILLIGRAM, 2X/DAY (BID)
  2. LACOSAMIDE [Suspect]
     Active Substance: LACOSAMIDE
     Dosage: 50 MILLIGRAM, ONCE DAILY (QD)
  3. CORTISONE [Concomitant]
     Active Substance: CORTISONE
     Indication: Dental operation

REACTIONS (9)
  - Dental operation [Unknown]
  - Osteoarthritis [Unknown]
  - Insomnia [Unknown]
  - Agitation [Unknown]
  - Movement disorder [Unknown]
  - Fatigue [Unknown]
  - Hypertension [Unknown]
  - Gastrointestinal disorder [Unknown]
  - Product use issue [Unknown]
